FAERS Safety Report 9484289 (Version 2)
Quarter: 2013Q3

REPORT INFORMATION
  Report Type: Report from Study
  Country: DE (occurrence: DE)
  Receive Date: 20130828
  Receipt Date: 20130828
  Transmission Date: 20140515
  Serious: Yes (Hospitalization)
  Sender: FDA-Public Use
  Company Number: PHHO2010DE06977

PATIENT
  Age: 70 Year
  Sex: Male
  Weight: 117 kg

DRUGS (18)
  1. ALISKIREN [Suspect]
     Indication: CARDIOVASCULAR DISORDER
     Route: 048
     Dates: start: 20100330, end: 20100507
  2. ALISKIREN [Suspect]
     Dates: end: 20100512
  3. DIOVAN [Concomitant]
     Indication: HYPERTENSION
     Dosage: UNK
     Dates: end: 20100924
  4. FRUSEMIDE [Concomitant]
     Indication: HYPERTENSION
     Dosage: UNK
     Dates: end: 20100924
  5. AMLODIPINE [Concomitant]
     Indication: HYPERTENSION
  6. THEOPHYLLINE [Concomitant]
  7. HCT [Concomitant]
  8. VOLMAC [Concomitant]
  9. SIMVASTATIN [Concomitant]
  10. FORADIL [Concomitant]
  11. SALBUHEXAL [Concomitant]
  12. SANASTHMAX [Concomitant]
  13. HUMALOG [Concomitant]
  14. CLEXANE [Concomitant]
  15. NACL [Concomitant]
  16. SPIRIVA [Concomitant]
  17. BECLOMETASONE [Concomitant]
  18. HUMINSULIN BASAL [Concomitant]

REACTIONS (5)
  - Renal impairment [Not Recovered/Not Resolved]
  - Renal failure acute [Recovered/Resolved]
  - Concomitant disease progression [Not Recovered/Not Resolved]
  - Infected skin ulcer [Recovered/Resolved]
  - Lymphoedema [Recovered/Resolved]
